FAERS Safety Report 24745363 (Version 1)
Quarter: 2024Q4

REPORT INFORMATION
  Report Type: Report from Study
  Country: SA (occurrence: SA)
  Receive Date: 20241217
  Receipt Date: 20241217
  Transmission Date: 20250115
  Serious: Yes (Hospitalization)
  Sender: BIOGEN
  Company Number: SA-BIOGEN-2024BI01293851

PATIENT
  Age: 9 Year
  Sex: Male
  Weight: 14.5 kg

DRUGS (1)
  1. SPINRAZA [Suspect]
     Active Substance: NUSINERSEN
     Indication: Spinal muscular atrophy
     Dosage: LOADING DOSES (0, 14, 28, 63) THEN 1 MAINTENANCE DOSE EVERY 4 MONTHS
     Route: 050
     Dates: start: 20210819

REACTIONS (1)
  - Productive cough [Recovered/Resolved]

NARRATIVE: CASE EVENT DATE: 20241201
